FAERS Safety Report 14647166 (Version 1)
Quarter: 2018Q1

REPORT INFORMATION
  Report Type: Spontaneous
  Country: US (occurrence: US)
  Receive Date: 20180316
  Receipt Date: 20180316
  Transmission Date: 20180509
  Serious: No
  Sender: FDA-Public Use
  Company Number: US-VERTEX PHARMACEUTICALS-2018-001742

PATIENT
  Age: 6 Year
  Sex: Female

DRUGS (5)
  1. ACETYLCYSTEINE. [Concomitant]
     Active Substance: ACETYLCYSTEINE
  2. AUGMENTIN [Concomitant]
     Active Substance: AMOXICILLIN\CLAVULANATE POTASSIUM
  3. CEFDINIR. [Concomitant]
     Active Substance: CEFDINIR
  4. ORKAMBI [Suspect]
     Active Substance: IVACAFTOR\LUMACAFTOR
     Indication: CYSTIC FIBROSIS
     Route: 048
  5. AZTREONAM LYSINE [Suspect]
     Active Substance: AZTREONAM LYSINE
     Indication: CYSTIC FIBROSIS
     Dosage: 75 MG (FREQUENCY UNSPECIFIED)
     Route: 055
     Dates: start: 20131217

REACTIONS (2)
  - Frequent bowel movements [Not Recovered/Not Resolved]
  - Dyspnoea [Not Recovered/Not Resolved]
